FAERS Safety Report 8534050-0 (Version None)
Quarter: 2012Q3

REPORT INFORMATION
  Report Type: 
  Country: None (occurrence: None)
  Receive Date: 20120724
  Receipt Date: 20120717
  Transmission Date: 20120928
  Serious: Yes (Other)
  Sender: FDA-Public Use
  Company Number: CA-ROCHE-GNE307873

PATIENT
  Sex: Female

DRUGS (4)
  1. PREDNISONE [Concomitant]
     Indication: PRODUCT USED FOR UNKNOWN INDICATION
  2. XOLAIR [Suspect]
     Route: 058
     Dates: start: 20100616
  3. VENTOLIN [Concomitant]
  4. XOLAIR [Suspect]
     Indication: ASTHMA
     Route: 058
     Dates: start: 20100616

REACTIONS (28)
  - FATIGUE [None]
  - DRUG INEFFECTIVE [None]
  - NASOPHARYNGITIS [None]
  - BRONCHITIS [None]
  - ABNORMAL FAECES [None]
  - WHEEZING [None]
  - ANIMAL BITE [None]
  - RALES [None]
  - PRODUCTIVE COUGH [None]
  - HEART RATE INCREASED [None]
  - COUGH [None]
  - BREATH SOUNDS ABNORMAL [None]
  - GASTRITIS [None]
  - SKIN WARM [None]
  - CHEST DISCOMFORT [None]
  - PNEUMONIA [None]
  - COLD SWEAT [None]
  - TOOTH DISORDER [None]
  - PLEURAL RUB [None]
  - DRY SKIN [None]
  - LUNG DISORDER [None]
  - DYSPNOEA EXERTIONAL [None]
  - INFECTION [None]
  - NAUSEA [None]
  - PALLOR [None]
  - ASTHENIA [None]
  - CYANOSIS [None]
  - DEPRESSION [None]
